FAERS Safety Report 8817706 (Version 5)
Quarter: 2014Q1

REPORT INFORMATION
  Report Type: Spontaneous
  Country: US (occurrence: US)
  Receive Date: 20121001
  Receipt Date: 20140327
  Transmission Date: 20141002
  Serious: Yes (Other)
  Sender: FDA-Public Use
  Company Number: US-PFIZER INC-2012241005

PATIENT
  Age: 65 Year
  Sex: Female
  Weight: 72.56 kg

DRUGS (17)
  1. LYRICA [Suspect]
     Indication: FIBROMYALGIA
     Dosage: 75 MG, 2X/DAY
     Route: 048
     Dates: start: 2007
  2. LYRICA [Suspect]
     Dosage: 75 MG, 1X/DAY
     Route: 048
  3. PRISTIQ [Suspect]
     Indication: MAJOR DEPRESSION
     Dosage: 100 MG, TAKE 3 TABLETS EVERY MORNING AND 1 TABLET EVERY EVENING
  4. ASPIRIN [Concomitant]
     Dosage: UNK
  5. LEVOTHROID [Concomitant]
     Dosage: 0.1 MG, 1X/DAY (OR AS DIRECTED)
  6. METOPROLOL [Concomitant]
     Dosage: 75 MG (50MG TABLET 1 AND 1/2 TABLETS), 2X/DAY
  7. PRAVASTATIN [Concomitant]
     Dosage: 40 MG, 1X/DAY (AT BEDTIME)
  8. LISINOPRIL [Concomitant]
     Indication: HYPERTENSION
     Dosage: 10 MG (1/2 OF 20MG TABLET), 1X/DAY
  9. AMBIEN [Concomitant]
     Indication: SLEEP DISORDER
     Dosage: 10 MG, 1X/DAY (AT BEDTIME)
     Route: 048
  10. ISOSORBIDE MONONITRATE [Concomitant]
     Indication: CARDIAC DISORDER
     Dosage: 60 MG, 1X/DAY
     Route: 048
  11. METFORMIN [Concomitant]
     Indication: GLUCOSE TOLERANCE IMPAIRED
     Dosage: 500 MG, 1X/DAY
     Route: 048
  12. ADVAIR [Concomitant]
     Dosage: 250 MCG-50 MCG INHALER, ONE INHALATION TWICE DAILY
  13. VENTOLIN HFA [Concomitant]
     Dosage: 90 MCG/ACTUATION L INHALER 8 GM, TWICE DAILY, AS NEEDED
  14. PANTOPRAZOLE [Concomitant]
     Dosage: 40 MG, 1X/DAY
     Route: 048
  15. ALBUTEROL SULFATE [Concomitant]
     Indication: DYSPNOEA
     Dosage: EVERY 4 TO 6 HOURS AS NEEDED
  16. ALBUTEROL SULFATE [Concomitant]
     Indication: WHEEZING
  17. NITROSTAT [Concomitant]
     Indication: CHEST PAIN
     Dosage: 0.4 MG (DISSOLVE 1 TABLET), AS NEEDED
     Route: 060

REACTIONS (6)
  - Dementia Alzheimer^s type [Not Recovered/Not Resolved]
  - Dementia [Not Recovered/Not Resolved]
  - Memory impairment [Not Recovered/Not Resolved]
  - Pain [Unknown]
  - Myalgia [Unknown]
  - Myositis [Unknown]
